FAERS Safety Report 6571593-3 (Version None)
Quarter: 2010Q1

REPORT INFORMATION
  Report Type: 
  Country: None (occurrence: None)
  Receive Date: 20100205
  Receipt Date: 20100128
  Transmission Date: 20100710
  Serious: Yes (Other)
  Sender: FDA-Public Use
  Company Number: GB-ASTRAZENECA-2010SE03834

PATIENT
  Age: 55 Year
  Sex: Female
  Weight: 87 kg

DRUGS (4)
  1. SEROQUEL [Suspect]
     Indication: SCHIZOPHRENIA
     Route: 048
     Dates: start: 20091116, end: 20091214
  2. SEROQUEL [Suspect]
     Indication: SLEEP DISORDER
     Route: 048
     Dates: start: 20091116, end: 20091214
  3. STELAZINE [Concomitant]
     Indication: SCHIZOPHRENIA
     Route: 048
     Dates: end: 20091114
  4. STELAZINE [Concomitant]
     Indication: PSYCHOTIC DISORDER
     Route: 048
     Dates: end: 20091114

REACTIONS (4)
  - DEPRESSION [None]
  - PERSONALITY CHANGE [None]
  - SENSATION OF HEAVINESS [None]
  - SUICIDAL IDEATION [None]
